FAERS Safety Report 5268219-8 (Version None)
Quarter: 2007Q1

REPORT INFORMATION
  Report Type: 
  Country: None (occurrence: None)
  Receive Date: 20070319
  Receipt Date: 20070308
  Transmission Date: 20070707
  Serious: Yes (Hospitalization)
  Sender: FDA-Public Use
  Company Number: US-AVENTIS-200712126GDDC

PATIENT
  Age: 73 Year
  Sex: Male
  Weight: 73.03 kg

DRUGS (2)
  1. TAXOTERE [Suspect]
     Indication: PROSTATE CANCER
     Dosage: DOSE: UNK
     Route: 042
     Dates: start: 20070228, end: 20070228
  2. OXALIPLATIN [Suspect]
     Indication: PROSTATE CANCER
     Dosage: DOSE: UNK
     Route: 042
     Dates: start: 20070228, end: 20070228

REACTIONS (3)
  - BACK PAIN [None]
  - DEHYDRATION [None]
  - RENAL FAILURE [None]
